FAERS Safety Report 7887752-3 (Version None)
Quarter: 2011Q4

REPORT INFORMATION
  Report Type: 
  Country: None (occurrence: None)
  Receive Date: 20111103
  Receipt Date: 20111021
  Transmission Date: 20120403
  Serious: Yes (Other)
  Sender: FDA-Public Use
  Company Number: HR-RANBAXY-2011RR-49913

PATIENT
  Age: 57 Year
  Sex: Female

DRUGS (5)
  1. MEBENDAZOLE [Concomitant]
     Indication: PRODUCT USED FOR UNKNOWN INDICATION
     Dosage: UNK
     Route: 065
  2. CIPRO [Suspect]
     Indication: NEPHROLITHIASIS
  3. AMOXICILIN/ CLAVULANIC ACID [Concomitant]
     Indication: PRODUCT USED FOR UNKNOWN INDICATION
     Dosage: UNK
     Route: 065
  4. CIPRO [Suspect]
     Indication: PYELONEPHRITIS
     Dosage: UNK
     Route: 065
  5. CIPRO [Suspect]
     Indication: ENTEROCOCCUS TEST POSITIVE

REACTIONS (1)
  - DRUG RASH WITH EOSINOPHILIA AND SYSTEMIC SYMPTOMS [None]
